FAERS Safety Report 18137240 (Version 2)
Quarter: 2021Q2

REPORT INFORMATION
  Report Type: Other
  Country: CN (occurrence: CN)
  Receive Date: 20200812
  Receipt Date: 20210412
  Transmission Date: 20210717
  Serious: Yes (Death, Other)
  Sender: FDA-Public Use
  Company Number: CN-ROCHE-2657081

PATIENT
  Age: 46 Year
  Sex: Female

DRUGS (6)
  1. CELLCEPT [Suspect]
     Active Substance: MYCOPHENOLATE MOFETIL\MYCOPHENOLATE MOFETIL HYDROCHLORIDE
     Indication: PROPHYLAXIS AGAINST TRANSPLANT REJECTION
     Dosage: 2 G PER DAY, THE DOSE WAS REDUCTION TO 1.5 G PER DAY WHEN ON THE 16TH POSTOPERATIVE DAY
     Route: 065
     Dates: start: 20000101
  2. PREDNISONE. [Concomitant]
     Active Substance: PREDNISONE
     Indication: PRODUCT USED FOR UNKNOWN INDICATION
     Dosage: INTRAOPERATIVE
     Route: 041
  3. CYCLOSPORIN A [Concomitant]
     Active Substance: CYCLOSPORINE
     Indication: PRODUCT USED FOR UNKNOWN INDICATION
     Dosage: PREOPERATIVE
     Route: 048
  4. CELLCEPT [Suspect]
     Active Substance: MYCOPHENOLATE MOFETIL\MYCOPHENOLATE MOFETIL HYDROCHLORIDE
     Indication: PROPHYLAXIS AGAINST TRANSPLANT REJECTION
  5. ROCEPHIN [Suspect]
     Active Substance: CEFTRIAXONE SODIUM
     Indication: FUNGAL INFECTION
     Dosage: 8 DAYS AFTER OPERATION WAS 200MG,1 60MG,260MG, 220MG,1 60MG,1 00MG,40MG,20MG,MAINTAIN 20MG PER DAY L
     Route: 065
  6. CYMEVENE [Suspect]
     Active Substance: GANCICLOVIR
     Indication: ANTIVIRAL PROPHYLAXIS
     Route: 065

REACTIONS (5)
  - Peritonitis [Fatal]
  - Organ failure [Fatal]
  - Myelosuppression [Unknown]
  - Sepsis [Fatal]
  - Infection [Unknown]
